FAERS Safety Report 5099801-9 (Version None)
Quarter: 2006Q3

REPORT INFORMATION
  Report Type: 
  Country: None (occurrence: None)
  Receive Date: 20060908
  Receipt Date: 20060828
  Transmission Date: 20061208
  Serious: Yes (Other)
  Sender: FDA-Public Use
  Company Number: US-ROCHE-461361

PATIENT
  Age: 22 Year
  Sex: Female
  Weight: 55.3 kg

DRUGS (2)
  1. ACCUTANE [Suspect]
     Indication: ACNE
     Route: 048
     Dates: start: 20051015, end: 20060315
  2. ORTHO TRI-CYCLEN [Concomitant]
     Indication: CONTRACEPTION
     Route: 048
     Dates: start: 20051015, end: 20060315

REACTIONS (6)
  - ACNE [None]
  - DEPRESSION [None]
  - FATIGUE [None]
  - MULTI-ORGAN DISORDER [None]
  - SUICIDAL IDEATION [None]
  - TRICHORRHEXIS [None]
